FAERS Safety Report 17104800 (Version 1)
Quarter: 2019Q4

REPORT INFORMATION
  Report Type: Spontaneous
  Country: US (occurrence: US)
  Receive Date: 20191107
  Receipt Date: 20191107
  Transmission Date: 20200122
  Serious: Yes (Hospitalization)
  Sender: FDA-Public Use
  Company Number: None

PATIENT
  Age: 68 Year
  Sex: Female

DRUGS (19)
  1. ALBUTEROL NEB SOLN [Concomitant]
  2. MOMETASONE TOP CREAM [Concomitant]
  3. ESCITALOPRAM [Concomitant]
     Active Substance: ESCITALOPRAM OXALATE
  4. SILDENAFIL. [Concomitant]
     Active Substance: SILDENAFIL
  5. OVAR [Concomitant]
  6. FLONASE [Concomitant]
     Active Substance: FLUTICASONE PROPIONATE
  7. MVI [Concomitant]
     Active Substance: VITAMINS
  8. AMBRISENTAN 10MG TABLETS 30/BO: 10MG [Suspect]
     Active Substance: AMBRISENTAN
     Indication: PULMONARY ARTERIAL HYPERTENSION
     Route: 048
     Dates: start: 201511
  9. AZATHIOPRINE. [Concomitant]
     Active Substance: AZATHIOPRINE
  10. TORSEMIDE. [Concomitant]
     Active Substance: TORSEMIDE
  11. TYLENOL [Concomitant]
     Active Substance: ACETAMINOPHEN
  12. PREDNISONE. [Concomitant]
     Active Substance: PREDNISONE
  13. METOLAZONE. [Concomitant]
     Active Substance: METOLAZONE
  14. VOLTAREN TOP GEL [Concomitant]
  15. ALBUTEROL HFA [Concomitant]
     Active Substance: ALBUTEROL SULFATE
  16. AMLODIPINE [Concomitant]
     Active Substance: AMLODIPINE BESYLATE
  17. SEPTRA DS [Concomitant]
     Active Substance: SULFAMETHOXAZOLE\TRIMETHOPRIM
  18. GABAPENTIN. [Concomitant]
     Active Substance: GABAPENTIN
  19. POTASSIUM CHLORIDE. [Concomitant]
     Active Substance: POTASSIUM CHLORIDE

REACTIONS (2)
  - Dyspnoea [None]
  - Sarcoidosis [None]

NARRATIVE: CASE EVENT DATE: 20191020
